FAERS Safety Report 18618894 (Version 1)
Quarter: 2020Q4

REPORT INFORMATION
  Report Type: Spontaneous
  Country: US (occurrence: US)
  Receive Date: 20201215
  Receipt Date: 20201215
  Transmission Date: 20210114
  Serious: No
  Sender: FDA-Public Use
  Company Number: US-SUPERNUS PHARMACEUTICALS, INC.-2020SUP00169

PATIENT
  Age: 92 Year
  Sex: Male

DRUGS (2)
  1. OXTELLAR XR [Suspect]
     Active Substance: OXCARBAZEPINE
     Indication: PAIN IN JAW
     Dosage: 300 MG
     Dates: start: 202004, end: 202006
  2. OXTELLAR XR [Suspect]
     Active Substance: OXCARBAZEPINE
     Indication: PAIN IN JAW
     Dosage: 600 MG
     Dates: start: 202006

REACTIONS (6)
  - Disorientation [Unknown]
  - Fall [Unknown]
  - Nausea [Unknown]
  - Dizziness [Unknown]
  - Vomiting [Not Recovered/Not Resolved]
  - Drug ineffective for unapproved indication [Recovered/Resolved]

NARRATIVE: CASE EVENT DATE: 2020
